FAERS Safety Report 8451556-3 (Version None)
Quarter: 2012Q2

REPORT INFORMATION
  Report Type: 
  Country: None (occurrence: None)
  Receive Date: 20120620
  Receipt Date: 20120307
  Transmission Date: 20120825
  Serious: No
  Sender: FDA-Public Use
  Company Number: US-VERTEX PHARMACEUTICALS INC.-AE-2012-003315

PATIENT
  Sex: Female

DRUGS (4)
  1. RIBAVIRIN [Concomitant]
     Indication: HEPATITIS C
     Dates: start: 20111229
  2. XANAX [Concomitant]
     Indication: ANXIETY
  3. INCIVEK [Suspect]
     Indication: HEPATITIS C
     Route: 048
     Dates: start: 20111229, end: 20120201
  4. PEGASYS [Concomitant]
     Indication: HEPATITIS C
     Route: 058
     Dates: start: 20111229

REACTIONS (5)
  - ALOPECIA [None]
  - DEPRESSION [None]
  - ANAEMIA [None]
  - CRYING [None]
  - NEUTROPENIA [None]
